FAERS Safety Report 23577184 (Version 2)
Quarter: 2024Q1

REPORT INFORMATION
  Report Type: Spontaneous
  Country: US (occurrence: US)
  Receive Date: 20240228
  Receipt Date: 20240228
  Transmission Date: 20240409
  Serious: No
  Sender: FDA-Public Use
  Company Number: US-GALDERMA-US2023015519

PATIENT

DRUGS (2)
  1. VECTICAL [Suspect]
     Active Substance: CALCITRIOL
     Indication: Psoriasis
     Dosage: 1 DOSAGE FORM, USED TWICE DAILY THREE TIMES A DAY
     Route: 061
     Dates: start: 2023
  2. CLOBETASOL PROPIONATE [Suspect]
     Active Substance: CLOBETASOL PROPIONATE
     Indication: Psoriasis
     Dosage: 1 DOSAGE FORM, BID
     Route: 061
     Dates: start: 2017

REACTIONS (3)
  - Rash erythematous [Not Recovered/Not Resolved]
  - Intentional underdose [Recovered/Resolved]
  - Intentional overdose [Recovered/Resolved]

NARRATIVE: CASE EVENT DATE: 20230101
